FAERS Safety Report 10230721 (Version 1)
Quarter: 2014Q2

REPORT INFORMATION
  Report Type: Spontaneous
  Country: FR (occurrence: FR)
  Receive Date: 20140611
  Receipt Date: 20140611
  Transmission Date: 20141212
  Serious: Yes (Life-Threatening, Other)
  Sender: FDA-Public Use
  Company Number: FR-PFIZER INC-2014158976

PATIENT
  Age: 80 Year
  Sex: Female

DRUGS (2)
  1. CORDARONE [Suspect]
     Indication: ARRHYTHMIA
     Dosage: 200 MG, DAILY
     Route: 048
     Dates: start: 20140417, end: 20140516
  2. XARELTO [Suspect]
     Indication: ARRHYTHMIA
     Dosage: 20 MG, DAILY
     Route: 048
     Dates: start: 20140417, end: 20140506

REACTIONS (5)
  - Hepatitis fulminant [Recovered/Resolved]
  - Fall [Unknown]
  - Clavicle fracture [Unknown]
  - Haematoma [Unknown]
  - Haemoglobin decreased [Unknown]
